FAERS Safety Report 4792456-X (Version None)
Quarter: 2005Q4

REPORT INFORMATION
  Report Type: 
  Country: None (occurrence: None)
  Receive Date: 20051010
  Receipt Date: 20051006
  Transmission Date: 20060501
  Serious: Yes (Other)
  Sender: FDA-Public Use
  Company Number: US-GLAXOSMITHKLINE-A0577362A

PATIENT
  Age: 13 Year
  Sex: Male

DRUGS (2)
  1. ADVAIR DISKUS 100/50 [Suspect]
     Indication: ASTHMA
     Dosage: 1PUFF UNKNOWN
     Route: 055
     Dates: start: 20050825
  2. UNKNOWN [Concomitant]

REACTIONS (3)
  - CHEST DISCOMFORT [None]
  - LOSS OF CONSCIOUSNESS [None]
  - SYNCOPE [None]
